FAERS Safety Report 11180028 (Version 1)
Quarter: 2015Q2

REPORT INFORMATION
  Report Type: Report from Study
  Country: US (occurrence: US)
  Receive Date: 20150611
  Receipt Date: 20150611
  Transmission Date: 20150821
  Serious: Yes (Other)
  Sender: FDA-Public Use
  Company Number: US-ROCHE-1561945

PATIENT

DRUGS (1)
  1. RITUXIMAB [Suspect]
     Active Substance: RITUXIMAB
     Indication: PROPHYLAXIS AGAINST TRANSPLANT REJECTION
     Route: 065

REACTIONS (14)
  - Hallucination [Recovered/Resolved]
  - Glucose tolerance impaired [Recovered/Resolved]
  - Muscular weakness [Recovered/Resolved]
  - Presyncope [Recovered/Resolved]
  - Acute kidney injury [Recovered/Resolved]
  - Fluid overload [Recovered/Resolved]
  - Leukopenia [Not Recovered/Not Resolved]
  - Pneumonia [Recovered/Resolved]
  - Respiratory tract infection [Recovered/Resolved]
  - Hypernatraemia [Recovered/Resolved]
  - Pleural effusion [Recovered/Resolved]
  - Transient ischaemic attack [Recovered/Resolved]
  - Jugular vein thrombosis [Recovered/Resolved]
  - Candida infection [Recovered/Resolved]

NARRATIVE: CASE EVENT DATE: 20111111
